FAERS Safety Report 5245951-3 (Version None)
Quarter: 2007Q1

REPORT INFORMATION
  Report Type: 
  Country: None (occurrence: None)
  Receive Date: 20070220
  Receipt Date: 20070202
  Transmission Date: 20070707
  Serious: Yes (Death, Life-Threatening, Hospitalization)
  Sender: FDA-Public Use
  Company Number: 15636

PATIENT
  Age: 76 Year
  Sex: Male
  Weight: 74 kg

DRUGS (12)
  1. LEUCOVORIN CALCIUM [Suspect]
     Indication: BILIARY NEOPLASM
     Dosage: 25 MG/M2 OTH IV
     Route: 042
     Dates: start: 20060612, end: 20061006
  2. FLUOROURACIL [Suspect]
     Indication: BILIARY NEOPLASM
     Dosage: 375 MG/M2 OTH IV
     Route: 042
     Dates: start: 20060612, end: 20061006
  3. PANTOPRAZOLE SODIUM [Concomitant]
  4. METAMIZOLE [Concomitant]
  5. INDAPAMIDE [Concomitant]
  6. ACETYLSALICYLIC ACID SRT [Concomitant]
  7. MEGESTROL ACETATE [Concomitant]
  8. FUROSEMIDE [Concomitant]
  9. ACETYLCYSTEIN. MFR: NOT SPECIFIED [Concomitant]
  10. OXYGEN [Concomitant]
  11. DEXAMETHASONE [Concomitant]
  12. ONDANSETRON [Concomitant]

REACTIONS (6)
  - BLOOD BICARBONATE DECREASED [None]
  - BLOOD CREATININE INCREASED [None]
  - DISEASE PROGRESSION [None]
  - GENERAL PHYSICAL HEALTH DETERIORATION [None]
  - HYPERGLYCAEMIA [None]
  - MUCOSAL INFLAMMATION [None]
